FAERS Safety Report 6239066-5 (Version None)
Quarter: 2009Q2

REPORT INFORMATION
  Report Type: 
  Country: None (occurrence: None)
  Receive Date: 20090622
  Receipt Date: 20090616
  Transmission Date: 20091009
  Serious: Yes (Other)
  Sender: FDA-Public Use
  Company Number: JP-MERCK-0906USA00638

PATIENT
  Age: 58 Year
  Sex: Male
  Weight: 68 kg

DRUGS (19)
  1. PROPECIA [Suspect]
     Indication: ANDROGENETIC ALOPECIA
     Route: 048
     Dates: start: 20081020, end: 20090601
  2. INSULIN HUMAN [Concomitant]
     Indication: DIABETES MELLITUS
     Route: 058
     Dates: start: 20050822, end: 20090412
  3. MEXITIL [Concomitant]
     Indication: DIABETIC NEUROPATHY
     Route: 048
     Dates: start: 20060117
  4. SEIBULE [Concomitant]
     Indication: DIABETES MELLITUS
     Route: 048
     Dates: start: 20060424
  5. ZYLORIC [Concomitant]
     Indication: HYPERURICAEMIA
     Route: 048
     Dates: start: 20060512
  6. ADALAT CC [Concomitant]
     Indication: HYPERTENSION
     Route: 048
  7. SLOW FE [Concomitant]
     Indication: NEPHROGENIC ANAEMIA
     Route: 048
  8. EPADEL S [Concomitant]
     Indication: HYPERLIPIDAEMIA
     Route: 048
  9. ACECOL [Concomitant]
     Indication: HYPERTENSION
     Route: 048
  10. ARTIST [Concomitant]
     Indication: HYPERTENSION
     Route: 048
  11. DIART [Concomitant]
     Indication: DIABETIC NEUROPATHY
     Route: 048
  12. CRESTOR [Concomitant]
     Route: 048
  13. OLMETEC [Concomitant]
     Indication: HYPERTENSION
     Route: 048
  14. LASIX [Concomitant]
     Indication: NEPHROPATHY
     Route: 048
  15. URINORM [Concomitant]
     Indication: HYPERURICAEMIA
     Route: 048
     Dates: start: 20080922
  16. URALYT [Concomitant]
     Indication: HYPERURICAEMIA
     Route: 048
     Dates: start: 20080922
  17. LIPITOR [Concomitant]
     Indication: HYPERCHOLESTEROLAEMIA
     Route: 048
  18. ANCARON [Concomitant]
     Indication: NEPHROPATHY
     Route: 048
  19. FLUITRAN [Concomitant]
     Indication: HYPERTENSION
     Route: 048

REACTIONS (1)
  - GLYCOSYLATED HAEMOGLOBIN INCREASED [None]
